FAERS Safety Report 6479536-8 (Version None)
Quarter: 2009Q4

REPORT INFORMATION
  Report Type: 
  Country: None (occurrence: None)
  Receive Date: 20091207
  Receipt Date: 20091207
  Transmission Date: 20100525
  Serious: Yes (Life-Threatening, Hospitalization)
  Sender: FDA-Public Use
  Company Number: None

PATIENT
  Age: 27 Year
  Sex: Female
  Weight: 127.0072 kg

DRUGS (2)
  1. MIRCETTE [Suspect]
     Indication: MENSTRUAL CYCLE MANAGEMENT
     Dosage: 1 A DAY PO
     Route: 048
     Dates: start: 20080110, end: 20090630
  2. MIRCETTE [Suspect]
     Indication: PREGNANCY
     Dosage: 1 A DAY PO
     Route: 048
     Dates: start: 20080110, end: 20090630

REACTIONS (5)
  - ABASIA [None]
  - DEEP VEIN THROMBOSIS [None]
  - IMPAIRED WORK ABILITY [None]
  - PULMONARY THROMBOSIS [None]
  - TOTAL LUNG CAPACITY ABNORMAL [None]
